FAERS Safety Report 17778530 (Version 1)
Quarter: 2020Q2

REPORT INFORMATION
  Report Type: Report from Study
  Country: None (occurrence: CO)
  Receive Date: 20200514
  Receipt Date: 20200514
  Transmission Date: 20200714
  Serious: Yes (Death, Hospitalization)
  Sender: FDA-Public Use
  Company Number: CO-ABBVIE-20K-036-3339313-00

PATIENT
  Age: 52 Year
  Sex: Male
  Weight: 63 kg

DRUGS (2)
  1. ZEMPLAR [Suspect]
     Active Substance: PARICALCITOL
     Indication: HYPERPARATHYROIDISM SECONDARY
     Route: 042
     Dates: start: 20170116, end: 20200210
  2. ZEMPLAR [Suspect]
     Active Substance: PARICALCITOL
     Route: 042
     Dates: start: 2020, end: 2020

REACTIONS (3)
  - White matter lesion [Fatal]
  - Seizure [Fatal]
  - Hypertensive urgency [Fatal]

NARRATIVE: CASE EVENT DATE: 202003
